FAERS Safety Report 6267610-0 (Version None)
Quarter: 2009Q3

REPORT INFORMATION
  Report Type: 
  Country: None (occurrence: None)
  Receive Date: 20090710
  Receipt Date: 20090626
  Transmission Date: 20100115
  Serious: Yes (Life-Threatening)
  Sender: FDA-Public Use
  Company Number: 1000007244

PATIENT
  Age: 24 Year
  Sex: Female
  Weight: 63 kg

DRUGS (2)
  1. CELEXA [Suspect]
     Dosage: (40 MG)
  2. YASMTN (TABLETS) [Concomitant]

REACTIONS (4)
  - PARANOIA [None]
  - SELF-INJURIOUS IDEATION [None]
  - SUICIDAL BEHAVIOUR [None]
  - SUICIDAL IDEATION [None]
